FAERS Safety Report 11650696 (Version 2)
Quarter: 2015Q4

REPORT INFORMATION
  Report Type: Spontaneous
  Country: JP (occurrence: JP)
  Receive Date: 20151021
  Receipt Date: 20151117
  Transmission Date: 20160304
  Serious: Yes (Other)
  Sender: FDA-Public Use
  Company Number: JP-MYLANLABS-2015M1034812

PATIENT

DRUGS (2)
  1. VOLTAREN [Concomitant]
     Active Substance: DICLOFENAC SODIUM
     Indication: SCIATICA
     Route: 061
  2. OMEPRAZOLE TABLETS 10MG ^MYLAN^ [Suspect]
     Active Substance: OMEPRAZOLE
     Indication: PRODUCT USED FOR UNKNOWN INDICATION
     Route: 048

REACTIONS (3)
  - Visual impairment [Recovering/Resolving]
  - Rhabdomyolysis [Recovering/Resolving]
  - Hypoaesthesia [Recovering/Resolving]
